FAERS Safety Report 9473771 (Version 2)
Quarter: 2013Q3

REPORT INFORMATION
  Report Type: Spontaneous
  Country: US (occurrence: US)
  Receive Date: 20130823
  Receipt Date: 20130823
  Transmission Date: 20140515
  Serious: Yes (Other)
  Sender: FDA-Public Use
  Company Number: US-BRISTOL-MYERS SQUIBB COMPANY-16970774

PATIENT
  Age: 57 Year
  Sex: Male

DRUGS (1)
  1. SPRYCEL [Suspect]
     Indication: CHRONIC MYELOID LEUKAEMIA
     Dosage: DOSE WAS FIRST DECREASED TO 50 MG FORM 100MG THEN SWITCHED TO IMATINIB.
     Dates: start: 200812, end: 201207

REACTIONS (1)
  - Pleural effusion [Not Recovered/Not Resolved]
